FAERS Safety Report 6809485-4 (Version None)
Quarter: 2010Q2

REPORT INFORMATION
  Report Type: 
  Country: None (occurrence: None)
  Receive Date: 20100630
  Receipt Date: 20100622
  Transmission Date: 20101027
  Serious: Yes (Hospitalization, Other)
  Sender: FDA-Public Use
  Company Number: BR-BRISTOL-MYERS SQUIBB COMPANY-15112394

PATIENT
  Age: 32 Year
  Sex: Male
  Weight: 68 kg

DRUGS (4)
  1. ORENCIA [Suspect]
     Indication: ANKYLOSING SPONDYLITIS
     Dosage: SEP 2009 INTERRUPTED ON END OF MAY10
     Route: 042
     Dates: start: 20080901
  2. DIPROSPAN [Suspect]
     Route: 042
  3. PROFENID [Suspect]
     Route: 042
  4. METHOTREXATE [Concomitant]

REACTIONS (3)
  - ANKYLOSING SPONDYLITIS [None]
  - SYPHILIS [None]
  - URTICARIA [None]
